FAERS Safety Report 9503463 (Version 1)
Quarter: 2013Q1

REPORT INFORMATION
  Report Type: Spontaneous
  Country: US (occurrence: None)
  Receive Date: 20130130
  Receipt Date: 20130130
  Transmission Date: 20140127
  Serious: Yes (Hospitalization)
  Sender: FDA-Public Use
  Company Number: US2012100002288

PATIENT
  Age: 51 Year
  Sex: Female

DRUGS (7)
  1. BYETTA (EXENATIDE) PEN, DISPOSABLE [Suspect]
     Route: 058
  2. LANTUS [Concomitant]
  3. PREVACID [Concomitant]
  4. AMARYL [Concomitant]
  5. LISINOPRIL [Concomitant]
  6. TOPROL [Concomitant]
  7. XANAX [Concomitant]

REACTIONS (2)
  - Pancreatitis [None]
  - Diverticulum [None]
